FAERS Safety Report 9603064 (Version 3)
Quarter: 2013Q4

REPORT INFORMATION
  Report Type: Report from Study
  Country: AU (occurrence: AU)
  Receive Date: 20131007
  Receipt Date: 20131105
  Transmission Date: 20140711
  Serious: Yes (Hospitalization)
  Sender: FDA-Public Use
  Company Number: AU-BRISTOL-MYERS SQUIBB COMPANY-19456193

PATIENT
  Age: 71 Year
  Sex: Female

DRUGS (7)
  1. PACLITAXEL [Suspect]
     Indication: BREAST CANCER METASTATIC
     Dosage: MOST RECENT DOSE PRIOR TO EVENT: 02/SEP/2013
     Route: 042
     Dates: start: 20130819, end: 2013
  2. GRANISETRON [Concomitant]
     Indication: NAUSEA
     Route: 048
     Dates: start: 20130819, end: 20130821
  3. LORATADINE [Concomitant]
     Route: 048
     Dates: start: 20130819
  4. COLOXYL [Concomitant]
     Indication: CONSTIPATION
     Dosage: TABS
     Route: 048
  5. ENDONE [Concomitant]
     Indication: PAIN
     Route: 048
     Dates: start: 20130824
  6. CEPHALEXIN [Concomitant]
     Indication: DIVERTICULITIS
     Route: 048
     Dates: start: 20130823, end: 20130827
  7. SODIUM [Concomitant]
     Dosage: MOUTH WASH
     Route: 048
     Dates: start: 20130819

REACTIONS (2)
  - Lower respiratory tract infection [Not Recovered/Not Resolved]
  - Dyspnoea [Not Recovered/Not Resolved]
